FAERS Safety Report 7632647-3 (Version None)
Quarter: 2011Q3

REPORT INFORMATION
  Report Type: 
  Country: None (occurrence: None)
  Receive Date: 20110725
  Receipt Date: 20101117
  Transmission Date: 20111222
  Serious: No
  Sender: FDA-Public Use
  Company Number: US-BRISTOL-MYERS SQUIBB COMPANY-15377187

PATIENT
  Age: 92 Year
  Sex: Female

DRUGS (2)
  1. COUMADIN [Suspect]
     Indication: DEEP VEIN THROMBOSIS
     Dosage: DURATION OF THERAPY:OVER 1 YR. 1DF=5MG DAILY + 2.5MG ON SUNDAY.
     Route: 048
     Dates: start: 20090401
  2. PRILOSEC [Concomitant]

REACTIONS (1)
  - NEPHROLITHIASIS [None]
